FAERS Safety Report 14996695 (Version 2)
Quarter: 2018Q3

REPORT INFORMATION
  Report Type: Report from Study
  Country: US (occurrence: US)
  Receive Date: 20180611
  Receipt Date: 20180719
  Transmission Date: 20181010
  Serious: Yes (Other)
  Sender: FDA-Public Use
  Company Number: US-AMGEN-USASL2018075841

PATIENT
  Age: 80 Year
  Sex: Female

DRUGS (5)
  1. DOFETILIDE. [Concomitant]
     Active Substance: DOFETILIDE
  2. CLOPIDOGREL [Concomitant]
     Active Substance: CLOPIDOGREL BISULFATE
  3. GABAPENTIN. [Suspect]
     Active Substance: GABAPENTIN
     Indication: PRODUCT USED FOR UNKNOWN INDICATION
     Dosage: UNK
     Route: 065
     Dates: end: 2018
  4. APIXABAN [Concomitant]
     Active Substance: APIXABAN
  5. REPATHA [Suspect]
     Active Substance: EVOLOCUMAB
     Indication: HYPERCHOLESTEROLAEMIA
     Dosage: 420 MG, QMO
     Route: 065
     Dates: start: 20180503, end: 2018

REACTIONS (18)
  - Hypoaesthesia [Not Recovered/Not Resolved]
  - Paraesthesia [Unknown]
  - Swelling face [Unknown]
  - Injection site pain [Unknown]
  - Neuropathy peripheral [Unknown]
  - Musculoskeletal stiffness [Unknown]
  - Mobility decreased [Not Recovered/Not Resolved]
  - Injection site warmth [Unknown]
  - Wrong technique in device usage process [Unknown]
  - Diarrhoea [Unknown]
  - Slow speech [Unknown]
  - Dysphagia [Unknown]
  - Arthralgia [Unknown]
  - Gait disturbance [Unknown]
  - Deafness unilateral [Recovering/Resolving]
  - Hypoaesthesia oral [Not Recovered/Not Resolved]
  - Memory impairment [Unknown]
  - Thinking abnormal [Unknown]

NARRATIVE: CASE EVENT DATE: 2018
